FAERS Safety Report 15219717 (Version 1)
Quarter: 2018Q3

REPORT INFORMATION
  Report Type: Spontaneous
  Country: FR (occurrence: FR)
  Receive Date: 20180731
  Receipt Date: 20180731
  Transmission Date: 20181010
  Serious: Yes (Other)
  Sender: FDA-Public Use
  Company Number: FR-ROCHE-2161239

PATIENT
  Age: 32 Year
  Sex: Female

DRUGS (1)
  1. RITUXIMAB. [Suspect]
     Active Substance: RITUXIMAB
     Indication: MULTIPLE SCLEROSIS
     Route: 041
     Dates: start: 201608

REACTIONS (3)
  - Multiple sclerosis [Unknown]
  - Off label use [Unknown]
  - Intentional product use issue [Unknown]
